FAERS Safety Report 8979059 (Version 2)
Quarter: 2013Q1

REPORT INFORMATION
  Report Type: Spontaneous
  Country: US (occurrence: US)
  Receive Date: 20121221
  Receipt Date: 20130107
  Transmission Date: 20140127
  Serious: Yes (Other)
  Sender: FDA-Public Use
  Company Number: US-ABBOTT-12P-163-1021676-00

PATIENT
  Sex: Male

DRUGS (2)
  1. HUMIRA [Suspect]
     Indication: CROHN^S DISEASE
  2. REMICADE [Suspect]
     Indication: CROHN^S DISEASE

REACTIONS (4)
  - Probiotic therapy [Unknown]
  - Crohn^s disease [Unknown]
  - Drug ineffective [Unknown]
  - Clostridium difficile infection [Unknown]
